FAERS Safety Report 19288093 (Version 1)
Quarter: 2021Q2

REPORT INFORMATION
  Report Type: Spontaneous
  Country: US (occurrence: US)
  Receive Date: 20210522
  Receipt Date: 20210522
  Transmission Date: 20210717
  Serious: Yes (Other)
  Sender: FDA-Public Use
  Company Number: US-AUROBINDO-07-AUR-00058

PATIENT
  Age: 56 Year
  Sex: Female

DRUGS (2)
  1. METFORMIN [Suspect]
     Active Substance: METFORMIN HYDROCHLORIDE
     Indication: DIABETES MELLITUS MANAGEMENT
     Dosage: UNK
     Route: 065
  2. ROSIGLITAZONE [Suspect]
     Active Substance: ROSIGLITAZONE
     Indication: DIABETES MELLITUS MANAGEMENT
     Dosage: UNK
     Route: 065

REACTIONS (2)
  - Exophthalmos [Recovered/Resolved]
  - Diplopia [Unknown]
